FAERS Safety Report 25996974 (Version 1)
Quarter: 2025Q4

REPORT INFORMATION
  Report Type: Spontaneous
  Country: CN (occurrence: CN)
  Receive Date: 20251104
  Receipt Date: 20251104
  Transmission Date: 20260117
  Serious: Yes (Death)
  Sender: NOVARTIS
  Company Number: CN-002147023-NVSC2025CN168459

PATIENT

DRUGS (5)
  1. CYCLOSPORINE [Suspect]
     Active Substance: CYCLOSPORINE
     Indication: Prophylaxis against graft versus host disease
     Dosage: 2.5 MG/KG, QD (INFUSION)
     Route: 042
  2. BUSULFAN [Concomitant]
     Active Substance: BUSULFAN
     Indication: Prophylaxis
     Dosage: 3.2 MG/KG, QD, ? 4 D (-8, -7, -6, -5 D)
     Route: 065
  3. CYCLOPHOSPHAMIDE [Concomitant]
     Active Substance: CYCLOPHOSPHAMIDE
     Indication: Prophylaxis
     Dosage: 1.8 G/M? ? 2 D (-4, -3 D)
     Route: 065
  4. SEMUSTINE [Concomitant]
     Active Substance: SEMUSTINE
     Indication: Prophylaxis
     Dosage: 250 MG/M2?1 D (-2 D)
     Route: 065
  5. Immunoglobulin [Concomitant]
     Indication: Bone marrow conditioning regimen
     Dosage: 2.5 MG/KG (-5, -4, -3 D, HLA MISMATCH) OR 1.5 MG/KG (-5, -4, -3 D, HLA MATCH)
     Route: 065

REACTIONS (3)
  - Acute respiratory failure [Fatal]
  - Graft versus host disease in gastrointestinal tract [Fatal]
  - Pneumonia [Fatal]
